FAERS Safety Report 24264821 (Version 3)
Quarter: 2024Q4

REPORT INFORMATION
  Report Type: Spontaneous
  Country: US (occurrence: US)
  Receive Date: 20240829
  Receipt Date: 20241108
  Transmission Date: 20250114
  Serious: Yes (Hospitalization)
  Sender: PFIZER
  Company Number: US-PFIZER INC-202400246251

PATIENT
  Age: 90 Year
  Sex: Female
  Weight: 49.887 kg

DRUGS (1)
  1. IBRANCE [Suspect]
     Active Substance: PALBOCICLIB
     Indication: Neoplasm malignant
     Dosage: UNK, 1X/DAY
     Route: 048
     Dates: start: 2019, end: 202409

REACTIONS (3)
  - COVID-19 [Recovering/Resolving]
  - Hepatitis [Recovering/Resolving]
  - Cholecystitis [Recovering/Resolving]

NARRATIVE: CASE EVENT DATE: 20240822
